FAERS Safety Report 18930616 (Version 1)
Quarter: 2021Q1

REPORT INFORMATION
  Report Type: Spontaneous
  Country: US (occurrence: US)
  Receive Date: 20210223
  Receipt Date: 20210223
  Transmission Date: 20210420
  Serious: Yes (Hospitalization)
  Sender: FDA-Public Use
  Company Number: US-ELI_LILLY_AND_COMPANY-US202102007352

PATIENT
  Age: 80 Year
  Sex: Female

DRUGS (1)
  1. BAMLANIVIMAB 700MG [Suspect]
     Active Substance: BAMLANIVIMAB
     Indication: COVID-19
     Dosage: UNK, SINGLE
     Route: 065
     Dates: start: 20210113, end: 20210113

REACTIONS (6)
  - Urinary tract infection [Recovered/Resolved]
  - Somnolence [Recovered/Resolved]
  - COVID-19 [Unknown]
  - Coronavirus infection [Recovered/Resolved]
  - Anxiety [Not Recovered/Not Resolved]
  - Heart rate decreased [Recovered/Resolved]

NARRATIVE: CASE EVENT DATE: 20210207
